FAERS Safety Report 16608296 (Version 1)
Quarter: 2019Q3

REPORT INFORMATION
  Report Type: Spontaneous
  Country: US (occurrence: US)
  Receive Date: 20190606
  Receipt Date: 20190606
  Transmission Date: 20191004
  Serious: No
  Sender: FDA-Public Use
  Company Number: None

PATIENT
  Age: 73 Year
  Sex: Female
  Weight: 87.09 kg

DRUGS (2)
  1. TALTZ [Suspect]
     Active Substance: IXEKIZUMAB
     Indication: PSORIASIS
     Dosage: INJECT  80MG (1 PEN) SUBCUTANEOUSLY AT WEEK 12 THEN EVERY 4 WEEKS AS DIRECTED
     Route: 058
     Dates: start: 201903
  2. TALTZ [Suspect]
     Active Substance: IXEKIZUMAB
     Indication: PSORIATIC ARTHROPATHY
     Dosage: INJECT  80MG (1 PEN) SUBCUTANEOUSLY AT WEEK 12 THEN EVERY 4 WEEKS AS DIRECTED
     Route: 058
     Dates: start: 201903

REACTIONS (1)
  - Sepsis [None]
